FAERS Safety Report 7946850-6 (Version None)
Quarter: 2011Q4

REPORT INFORMATION
  Report Type: 
  Country: None (occurrence: None)
  Receive Date: 20111129
  Receipt Date: 20111121
  Transmission Date: 20120403
  Serious: Yes (Hospitalization)
  Sender: FDA-Public Use
  Company Number: PHHY2011JP86891

PATIENT
  Age: 80 Year
  Sex: Female

DRUGS (2)
  1. GLEEVEC [Suspect]
     Dosage: 300 MG, DAILY
     Route: 048
     Dates: start: 20080305
  2. GLEEVEC [Suspect]
     Indication: GASTROINTESTINAL STROMAL TUMOUR
     Dosage: 400 MG, DAILY
     Route: 048

REACTIONS (4)
  - BRAIN STEM HAEMORRHAGE [None]
  - PLATELET COUNT DECREASED [None]
  - MALAISE [None]
  - MOVEMENT DISORDER [None]
